FAERS Safety Report 9320281 (Version 3)
Quarter: 2013Q2

REPORT INFORMATION
  Report Type: Spontaneous
  Country: FR (occurrence: FR)
  Receive Date: 20130530
  Receipt Date: 20130625
  Transmission Date: 20140414
  Serious: Yes (Other)
  Sender: FDA-Public Use
  Company Number: FR-B.I. PHARMACEUTICALS,INC./RIDGEFIELD-2013-FF-01452FF

PATIENT
  Age: 63 Year
  Sex: Female

DRUGS (7)
  1. PRADAXA [Suspect]
     Indication: THROMBOSIS PROPHYLAXIS
     Dosage: 220 MG
     Route: 048
     Dates: start: 20130426, end: 20130502
  2. TAHOR [Concomitant]
  3. XYZALL [Concomitant]
     Dosage: 5 MG
  4. SINGULAIR [Concomitant]
  5. POLERY [Concomitant]
  6. KARDEGIC [Concomitant]
  7. TARDYFERON [Concomitant]
     Dosage: 160 MG

REACTIONS (1)
  - Phlebitis [Recovered/Resolved]
